FAERS Safety Report 7383126-2 (Version None)
Quarter: 2011Q1

REPORT INFORMATION
  Report Type: 
  Country: None (occurrence: None)
  Receive Date: 20110330
  Receipt Date: 20110207
  Transmission Date: 20110831
  Serious: Yes (Hospitalization)
  Sender: FDA-Public Use
  Company Number: AU-BAYER-2011-011603

PATIENT
  Sex: Female
  Weight: 115 kg

DRUGS (2)
  1. BACLOFEN [Concomitant]
     Indication: MUSCLE SPASTICITY
     Dosage: UNK
     Route: 048
  2. BETAFERON [Suspect]
     Indication: SECONDARY PROGRESSIVE MULTIPLE SCLEROSIS
     Dosage: 250 MCG/ML, QOD
     Route: 058
     Dates: start: 20110204, end: 20110206

REACTIONS (4)
  - URINARY INCONTINENCE [None]
  - POLLAKIURIA [None]
  - FALL [None]
  - ASTHENIA [None]
